FAERS Safety Report 25337373 (Version 2)
Quarter: 2025Q2

REPORT INFORMATION
  Report Type: Spontaneous
  Country: US (occurrence: US)
  Receive Date: 20250520
  Receipt Date: 20250522
  Transmission Date: 20250717
  Serious: Yes (Other)
  Sender: CSL Plasma
  Company Number: US-CSLP-26302237683-V0039ZVS-39

PATIENT
  Age: 38 Year
  Sex: Female

DRUGS (2)
  1. ANTICOAGULANT SODIUM CITRATE [Suspect]
     Active Substance: SODIUM CITRATE
     Indication: Anticoagulant therapy
     Route: 050
     Dates: start: 20250513, end: 20250513
  2. SALINE [Concomitant]
     Active Substance: SODIUM CHLORIDE
     Indication: Product used for unknown indication
     Dates: start: 20250513, end: 20250513

REACTIONS (16)
  - Loss of consciousness [Recovered/Resolved]
  - Pallor [Recovered/Resolved]
  - Dizziness [Recovered/Resolved]
  - Hypoaesthesia [Recovered/Resolved]
  - Asthenia [Recovered/Resolved]
  - Anxiety [Recovered/Resolved]
  - Muscle spasms [Recovered/Resolved]
  - Tetany [Recovered/Resolved]
  - Hyperhidrosis [Recovered/Resolved]
  - Dysgeusia [Recovered/Resolved]
  - Confusional state [Recovered/Resolved]
  - Movement disorder [Recovered/Resolved]
  - Nausea [Recovered/Resolved]
  - Disorientation [Recovered/Resolved]
  - Paraesthesia [Recovered/Resolved]
  - Muscle contracture [Recovered/Resolved]

NARRATIVE: CASE EVENT DATE: 20250513
